FAERS Safety Report 9179287 (Version 1)
Quarter: 2012Q4

REPORT INFORMATION
  Report Type: 
  Country: US (occurrence: US)
  Receive Date: 20121029
  Receipt Date: 20121029
  Transmission Date: 20130627
  Serious: No
  Sender: FDA-Public Use
  Company Number: US-AMGEN-USASP2012055655

PATIENT
  Age: 47 Year
  Sex: Female
  Weight: 106.58 kg

DRUGS (5)
  1. ENBREL [Suspect]
     Indication: RHEUMATOID ARTHRITIS
  2. REMICADE [Suspect]
     Indication: RHEUMATOID ARTHRITIS
     Dosage: UNK
     Dates: start: 2003, end: 2006
  3. REMICADE [Suspect]
     Dosage: UNK
     Dates: start: 201207
  4. PREDNISONE [Concomitant]
     Indication: RHEUMATOID ARTHRITIS
  5. METHOTREXATE [Concomitant]
     Indication: RHEUMATOID ARTHRITIS

REACTIONS (13)
  - Diabetes mellitus [Unknown]
  - Chills [Unknown]
  - Skin atrophy [Unknown]
  - Animal scratch [Unknown]
  - Insomnia [Unknown]
  - Headache [Unknown]
  - Chest discomfort [Unknown]
  - Osteoarthritis [Unknown]
  - Alopecia [Unknown]
  - Vitamin D decreased [Unknown]
  - Hypersensitivity [Unknown]
  - Pruritus [Unknown]
  - Urticaria [Unknown]
